FAERS Safety Report 9417628 (Version 1)
Quarter: 2013Q3

REPORT INFORMATION
  Report Type: Spontaneous
  Country: US (occurrence: US)
  Receive Date: 20130724
  Receipt Date: 20130724
  Transmission Date: 20140515
  Serious: No
  Sender: FDA-Public Use
  Company Number: US-BRISTOL-MYERS SQUIBB COMPANY-18977447

PATIENT
  Age: 73 Year
  Sex: Female
  Weight: 99.77 kg

DRUGS (7)
  1. ELIQUIS [Suspect]
     Indication: ATRIAL FIBRILLATION
     Dates: start: 2013
  2. PRAVASTATIN SODIUM [Suspect]
  3. MICARDIS [Concomitant]
  4. CARVEDILOL [Concomitant]
  5. LEVOTHYROXINE [Concomitant]
  6. VITAMIN B12 [Concomitant]
  7. XANAX [Concomitant]
     Dosage: 0.25 ONCE OR TWICE DAILY.

REACTIONS (5)
  - Nasopharyngitis [Unknown]
  - Oropharyngeal pain [Unknown]
  - Productive cough [Unknown]
  - Myalgia [Unknown]
  - Dyspnoea [Unknown]
